FAERS Safety Report 7406327-3 (Version None)
Quarter: 2011Q2

REPORT INFORMATION
  Report Type: 
  Country: None (occurrence: None)
  Receive Date: 20110411
  Receipt Date: 20110404
  Transmission Date: 20111010
  Serious: Yes (Hospitalization)
  Sender: FDA-Public Use
  Company Number: JP-MERCK-1101USA03212

PATIENT
  Age: 90 Year
  Sex: Female

DRUGS (8)
  1. METHYCOBAL [Concomitant]
     Route: 048
  2. SIGMART [Concomitant]
     Route: 048
  3. PEPCID [Concomitant]
     Route: 048
  4. ASPIRIN [Concomitant]
     Route: 048
  5. JANUVIA [Suspect]
     Indication: DIABETES MELLITUS
     Route: 048
     Dates: start: 20110112, end: 20110101
  6. SINGULAIR [Concomitant]
     Indication: ASTHMA
     Route: 048
     Dates: start: 20101227
  7. CLARITHROMYCIN [Concomitant]
     Route: 048
  8. CLEANAL [Concomitant]
     Route: 048

REACTIONS (2)
  - HEPATIC FUNCTION ABNORMAL [None]
  - JAUNDICE [None]
